APPROVED DRUG PRODUCT: PREDNISOLONE SODIUM PHOSPHATE
Active Ingredient: PREDNISOLONE SODIUM PHOSPHATE
Strength: EQ 0.11% PHOSPHATE
Dosage Form/Route: SOLUTION/DROPS;OPHTHALMIC
Application: A081043 | Product #001
Applicant: ALCON PHARMACEUTICALS LTD
Approved: Oct 24, 1991 | RLD: No | RS: No | Type: DISCN